FAERS Safety Report 4976735-9 (Version None)
Quarter: 2006Q2

REPORT INFORMATION
  Report Type: 
  Country: None (occurrence: None)
  Receive Date: 20060419
  Receipt Date: 20060410
  Transmission Date: 20061013
  Serious: Yes (Other)
  Sender: FDA-Public Use
  Company Number: PHEH2006US04921

PATIENT
  Age: 8 Year
  Sex: Female

DRUGS (2)
  1. TRILEPTAL [Suspect]
     Indication: CONVULSION
     Dosage: 450 MG QAM + 900 MG QHS
     Dates: start: 20031203
  2. CLARITIN OTC [Concomitant]
     Indication: SEASONAL ALLERGY
     Dosage: UNK, PRN

REACTIONS (1)
  - CONVULSION [None]
